FAERS Safety Report 7933941-9 (Version None)
Quarter: 2011Q4

REPORT INFORMATION
  Report Type: 
  Country: None (occurrence: None)
  Receive Date: 20111122
  Receipt Date: 20111116
  Transmission Date: 20120403
  Serious: Yes (Other)
  Sender: FDA-Public Use
  Company Number: FR-JNJFOC-20110902528

PATIENT
  Age: 32 Year
  Sex: Female
  Weight: 48 kg

DRUGS (3)
  1. REMICADE [Suspect]
     Indication: CROHN'S DISEASE
     Route: 042
     Dates: start: 20100101
  2. HYDROCORTISONE [Concomitant]
  3. HYDROCORTISONE [Concomitant]
     Indication: PREMEDICATION

REACTIONS (2)
  - INFUSION RELATED REACTION [None]
  - TACHYCARDIA [None]
